FAERS Safety Report 17225366 (Version 1)
Quarter: 2020Q1

REPORT INFORMATION
  Report Type: Spontaneous
  Country: CA (occurrence: CA)
  Receive Date: 20200102
  Receipt Date: 20200102
  Transmission Date: 20200409
  Serious: Yes (Other)
  Sender: FDA-Public Use
  Company Number: NVSC2019CA083815

PATIENT
  Sex: Male

DRUGS (2)
  1. VOLTAREN EMULGEL [Suspect]
     Active Substance: DICLOFENAC DIETHYLAMINE
     Indication: PAIN IN EXTREMITY
  2. VOLTAREN EMULGEL [Suspect]
     Active Substance: DICLOFENAC DIETHYLAMINE
     Indication: BACK PAIN
     Dosage: UNK
     Route: 065

REACTIONS (4)
  - Intervertebral disc protrusion [Unknown]
  - Cauda equina syndrome [Unknown]
  - Neoplasm malignant [Recovered/Resolved]
  - Intracranial mass [Unknown]
